FAERS Safety Report 21571815 (Version 1)
Quarter: 2022Q4

REPORT INFORMATION
  Report Type: Spontaneous
  Country: US (occurrence: None)
  Receive Date: 20221109
  Receipt Date: 20221109
  Transmission Date: 20230113
  Serious: No
  Sender: FDA-Public Use
  Company Number: 2022A356861

PATIENT
  Sex: Male

DRUGS (1)
  1. FARXIGA [Suspect]
     Active Substance: DAPAGLIFLOZIN PROPANEDIOL
     Route: 048
     Dates: start: 202208

REACTIONS (6)
  - Pharyngeal swelling [Unknown]
  - Dysphagia [Unknown]
  - Discomfort [Unknown]
  - Choking sensation [Unknown]
  - Dry mouth [Unknown]
  - Tongue dry [Unknown]
